FAERS Safety Report 8698200 (Version 2)
Quarter: 2013Q4

REPORT INFORMATION
  Report Type: Spontaneous
  Country: US (occurrence: US)
  Receive Date: 20120802
  Receipt Date: 20131107
  Transmission Date: 20140711
  Serious: Yes (Hospitalization)
  Sender: FDA-Public Use
  Company Number: US-009507513-1207USA009964

PATIENT
  Age: 58 Year
  Sex: Male

DRUGS (10)
  1. ZOCOR [Suspect]
     Route: 048
  2. LITHIUM CARBONATE [Suspect]
     Dosage: 900 MG, UNK
  3. LITHIUM CARBONATE [Suspect]
     Dosage: 1125 MG, UNK
  4. AMLODIPINE [Suspect]
     Dosage: UNK MG, UNK
  5. COCA [Suspect]
     Dosage: UNK
  6. FOSINOPRIL SODIUM [Suspect]
  7. ASPIRIN [Suspect]
  8. METOPROLOL [Suspect]
  9. INSULIN GLARGINE [Concomitant]
     Route: 058
  10. INSULIN [Concomitant]
     Route: 058

REACTIONS (2)
  - Antipsychotic drug level below therapeutic [Unknown]
  - Abdominal pain upper [Unknown]
